FAERS Safety Report 4417764-3 (Version None)
Quarter: 2004Q3

REPORT INFORMATION
  Report Type: 
  Country: None (occurrence: None)
  Receive Date: 20040803
  Receipt Date: 20040721
  Transmission Date: 20050211
  Serious: Yes (Hospitalization)
  Sender: FDA-Public Use
  Company Number: 04P-087-0266442-00

PATIENT
  Age: 67 Year
  Sex: Female
  Weight: 46 kg

DRUGS (16)
  1. BIAXIN [Suspect]
     Indication: PYREXIA
     Dosage: 200 MG, 2 IN 1 D, PER ORAL
     Route: 048
     Dates: start: 20031130, end: 20031201
  2. FLUCONAZOLE [Concomitant]
  3. ROXATIDINE ACETATE HCL [Concomitant]
  4. ECABET SODIUM [Concomitant]
  5. OXAZOLAM [Concomitant]
  6. TROSPIUM CHLORIDE [Concomitant]
  7. FLUTAZOLAM [Concomitant]
  8. IBUPROFEN [Concomitant]
  9. TRANEXAMIC ACID [Concomitant]
  10. DIMEMORFAN PHOSPHATE [Concomitant]
  11. DIPHENHYDRAMINE TANNATE [Concomitant]
  12. DIPHENHYDRAMINE TANNATE [Concomitant]
  13. DEXTROMETHORPHAN HYDROBROMIDE [Concomitant]
  14. ANTIBIOTICS RESISTANT LACTIC ACID BACTERIAE [Concomitant]
  15. GASTROPHYLLIN-A [Concomitant]
  16. MECTOCLOPRAMIDE [Concomitant]

REACTIONS (4)
  - CLOSTRIDIUM COLITIS [None]
  - ILEUS PARALYTIC [None]
  - PLEURAL EFFUSION [None]
  - RESPIRATORY FAILURE [None]
